FAERS Safety Report 24573018 (Version 1)
Quarter: 2024Q4

REPORT INFORMATION
  Report Type: Report from Study
  Country: US (occurrence: US)
  Receive Date: 20241101
  Receipt Date: 20241101
  Transmission Date: 20250115
  Serious: Yes (Hospitalization)
  Sender: AEGERION
  Company Number: US-AMRYT PHARMACEUTICALS DAC-AEGR007225

PATIENT
  Sex: Male
  Weight: 19.995 kg

DRUGS (3)
  1. FILSUVEZ [Suspect]
     Active Substance: BIRCH TRITERPENES
     Indication: Epidermolysis bullosa
     Dosage: 10 PERCENT W/W GEL (23.4 G), APPLY A 1 MM LAYER TO AFFECTED WOUND SURFACE (S) AT EACH DRESSING CHANG
     Route: 061
     Dates: start: 20240610
  2. FILSUVEZ [Suspect]
     Active Substance: BIRCH TRITERPENES
     Dosage: 10 PERCENT W/W GEL (23.4 G), APPLY A 1 MM LAYER TO AFFECTED WOUND SURFACE (S) AT EACH DRESSING CHANG
     Route: 061
     Dates: start: 2024
  3. TRIAMCINOLONE [Concomitant]
     Active Substance: TRIAMCINOLONE
     Indication: Excessive granulation tissue

REACTIONS (13)
  - Oesophageal stenosis [Recovering/Resolving]
  - Skin wound [Recovering/Resolving]
  - Blister [Not Recovered/Not Resolved]
  - Hyperhidrosis [Not Recovered/Not Resolved]
  - Excessive granulation tissue [Recovered/Resolved]
  - Anxiety [Unknown]
  - Poor personal hygiene [Unknown]
  - Scratch [Unknown]
  - Wound infection [Unknown]
  - Wound complication [Not Recovered/Not Resolved]
  - Impaired healing [Not Recovered/Not Resolved]
  - Wound secretion [Unknown]
  - Product odour abnormal [Unknown]
